FAERS Safety Report 9128794 (Version 1)
Quarter: 2013Q1

REPORT INFORMATION
  Report Type: Spontaneous
  Country: US (occurrence: US)
  Receive Date: 20130228
  Receipt Date: 20130228
  Transmission Date: 20140127
  Serious: No
  Sender: FDA-Public Use
  Company Number: US-009507513-1302USA013221

PATIENT
  Sex: Female

DRUGS (2)
  1. REBETOL [Suspect]
     Indication: HEPATITIS C
     Dosage: 1200 MG, QD
     Route: 048
  2. REBETOL [Suspect]
     Dosage: 800 MG, QD
     Route: 048

REACTIONS (1)
  - Haemoglobin decreased [Not Recovered/Not Resolved]
